FAERS Safety Report 4317292-X (Version None)
Quarter: 2004Q1

REPORT INFORMATION
  Report Type: 
  Country: None (occurrence: None)
  Receive Date: 20040312
  Receipt Date: 20040227
  Transmission Date: 20041129
  Serious: Yes (Life-Threatening)
  Sender: FDA-Public Use
  Company Number: 2004006898

PATIENT
  Age: 90 Year
  Sex: Male
  Weight: 50 kg

DRUGS (13)
  1. DIFLUCAN [Suspect]
     Indication: CANDIDA PNEUMONIA
     Dosage: 400 MG (BID), INTRAVENOUS
     Route: 042
     Dates: start: 20040116, end: 20040118
  2. GLICLAZIDE (GLICLAZIDE) [Suspect]
     Indication: DIABETES MELLITUS
     Dosage: 80 MG (BID), ORAL
     Route: 048
     Dates: start: 20031216
  3. METILDIGOXIN (METILDIGOXIN) [Concomitant]
  4. BUFFERIN (ACETYLSALICYLIC ACID, MAGNESIUM CARBONATE, ALUMINUM GLYCINAT [Concomitant]
  5. SODIUM ALGINATE (SODIUM ALGINATE) [Concomitant]
  6. FUROSEMIDE [Concomitant]
  7. LIMAPROST (LIMAPROST) [Concomitant]
  8. BACTERIA NOS (BACTERIA NOS) [Concomitant]
  9. CLENBUTEROL HYDROCHLORIDE (CLENBUTEROL HYDROCHLORIDE) [Concomitant]
  10. HERBAL ONT [Concomitant]
  11. JUZENTAIHOTO (HERBAL EXTRACTS NOS) [Concomitant]
  12. TEICOPLANIN (TEICOPLANIN) [Concomitant]
  13. SULPERAZON (CEFOPERAZONE SODIUM, SULBACTAM SODIUM) [Concomitant]

REACTIONS (3)
  - CANDIDA PNEUMONIA [None]
  - EPISTAXIS [None]
  - HYPOGLYCAEMIA [None]
